FAERS Safety Report 5834822-7 (Version None)
Quarter: 2008Q3

REPORT INFORMATION
  Report Type: 
  Country: None (occurrence: None)
  Receive Date: 20080805
  Receipt Date: 20080730
  Transmission Date: 20090109
  Serious: Yes (Death, Hospitalization, Other)
  Sender: FDA-Public Use
  Company Number: IN-ELI_LILLY_AND_COMPANY-IN200807005088

PATIENT
  Age: 40 Year
  Sex: Female

DRUGS (3)
  1. HUMINSULIN REGULAR [Suspect]
     Indication: DIABETES MELLITUS
     Dosage: 15 IU, UNKNOWN
     Route: 065
     Dates: start: 20080723, end: 20080723
  2. HUMINSULIN REGULAR [Suspect]
     Dosage: 28 IU, UNKNOWN
     Route: 065
     Dates: start: 20080723, end: 20080724
  3. INSULIN [Concomitant]
     Indication: DIABETES MELLITUS
     Dosage: UNK,UNK

REACTIONS (2)
  - BRAIN OEDEMA [None]
  - HYPERGLYCAEMIA [None]
